FAERS Safety Report 10240990 (Version 2)
Quarter: 2014Q2

REPORT INFORMATION
  Report Type: Spontaneous
  Country: NL (occurrence: NL)
  Receive Date: 20140617
  Receipt Date: 20140617
  Transmission Date: 20141212
  Serious: Yes (Death, Hospitalization)
  Sender: FDA-Public Use
  Company Number: NL-AMGEN-NLDSP2012085653

PATIENT
  Age: 72 Year
  Sex: Female

DRUGS (2)
  1. XGEVA [Suspect]
     Indication: METASTASES TO BONE
     Dosage: 1.7 ML, Q4WK
     Route: 058
     Dates: start: 20120905, end: 20130315
  2. XGEVA [Suspect]
     Indication: PROPHYLAXIS

REACTIONS (2)
  - Death [Fatal]
  - Investigation [Recovered/Resolved]
